FAERS Safety Report 8299703-0 (Version None)
Quarter: 2012Q2

REPORT INFORMATION
  Report Type: 
  Country: None (occurrence: None)
  Receive Date: 20120419
  Receipt Date: 20120416
  Transmission Date: 20120825
  Serious: Yes (Death)
  Sender: FDA-Public Use
  Company Number: US-ROCHE-1036640

PATIENT
  Sex: Male
  Weight: 73.548 kg

DRUGS (6)
  1. PRAVACHOL [Concomitant]
     Route: 048
     Dates: start: 20061218, end: 20070123
  2. HYDROCHLOROTHIAZIDE [Concomitant]
     Indication: HYPERTENSION
     Route: 048
     Dates: start: 20061218, end: 20070123
  3. AVASTIN [Suspect]
     Indication: PRODUCT USED FOR UNKNOWN INDICATION
     Dates: start: 20070103, end: 20070130
  4. CARDURA [Concomitant]
     Indication: HYPERTENSION
     Route: 048
     Dates: start: 20061218, end: 20070123
  5. NORVASC [Concomitant]
     Indication: HYPERTENSION
     Route: 048
     Dates: start: 20061218, end: 20070123
  6. LEVOXYL [Concomitant]
     Indication: HORMONE REPLACEMENT THERAPY
     Route: 048
     Dates: start: 20061218, end: 20070123

REACTIONS (1)
  - DEATH [None]
